FAERS Safety Report 4655147-1 (Version None)
Quarter: 2005Q2

REPORT INFORMATION
  Report Type: 
  Country: None (occurrence: None)
  Receive Date: 20050505
  Receipt Date: 20050426
  Transmission Date: 20051028
  Serious: Yes (Hospitalization)
  Sender: FDA-Public Use
  Company Number: 2005-127917-NL

PATIENT
  Age: 88 Year
  Sex: Male

DRUGS (7)
  1. MIRTAZAPINE [Suspect]
     Dosage: 15MG/30 MG/ 15 MG
     Route: 048
     Dates: start: 20050114, end: 20050301
  2. MIRTAZAPINE [Suspect]
     Dosage: 15MG/30 MG/ 15 MG
     Route: 048
     Dates: start: 20050302, end: 20050309
  3. MIRTAZAPINE [Suspect]
     Dosage: 15MG/30 MG/ 15 MG
     Route: 048
     Dates: start: 20050310
  4. GALANTAMINE [Suspect]
     Dosage: 8 MG/16 MG/24 MG
     Route: 048
     Dates: start: 20050114, end: 20050126
  5. GALANTAMINE [Suspect]
     Dosage: 8 MG/16 MG/24 MG
     Route: 048
     Dates: start: 20050127, end: 20050406
  6. GALANTAMINE [Suspect]
     Dosage: 8 MG/16 MG/24 MG
     Route: 048
     Dates: start: 20050407
  7. VALPROIC ACID [Suspect]
     Dosage: 100 MG
     Route: 048
     Dates: start: 20050310

REACTIONS (5)
  - DEEP VEIN THROMBOSIS [None]
  - DIFFICULTY IN WALKING [None]
  - MUSCULOSKELETAL DISORDER [None]
  - SOMNOLENCE [None]
  - VISUAL DISTURBANCE [None]
